FAERS Safety Report 7589436-8 (Version None)
Quarter: 2011Q3

REPORT INFORMATION
  Report Type: 
  Country: None (occurrence: None)
  Receive Date: 20110705
  Receipt Date: 20110628
  Transmission Date: 20111222
  Serious: Yes (Death, Hospitalization)
  Sender: FDA-Public Use
  Company Number: GB-JNJFOC-20100400087

PATIENT
  Sex: Female

DRUGS (3)
  1. ANTI-DEPRESSANTS [Concomitant]
     Indication: ILL-DEFINED DISORDER
     Route: 065
  2. RISPERDAL CONSTA [Suspect]
     Indication: SCHIZOAFFECTIVE DISORDER
     Route: 030
     Dates: start: 20090201
  3. RISPERDAL CONSTA [Suspect]
     Indication: SCHIZOPHRENIA
     Route: 030
     Dates: start: 20090201

REACTIONS (2)
  - DRUG INEFFECTIVE [None]
  - COMPLETED SUICIDE [None]
